FAERS Safety Report 6199423-2 (Version None)
Quarter: 2009Q2

REPORT INFORMATION
  Report Type: 
  Country: None (occurrence: None)
  Receive Date: 20090522
  Receipt Date: 20090508
  Transmission Date: 20091009
  Serious: Yes (Other)
  Sender: FDA-Public Use
  Company Number: GB-AVENTIS-200915170GDDC

PATIENT
  Age: 77 Year
  Sex: Female

DRUGS (7)
  1. EUGLUCON [Suspect]
     Indication: DIABETES MELLITUS
     Route: 048
     Dates: start: 19910926
  2. LANTUS [Suspect]
     Route: 058
  3. ALOSITOL [Suspect]
     Route: 048
     Dates: end: 20090401
  4. GLUCOBAY [Suspect]
     Route: 048
  5. CARDENALIN [Suspect]
     Route: 048
  6. AMLODIPINE [Suspect]
     Route: 048
  7. NU-LOTAN [Suspect]
     Route: 048

REACTIONS (2)
  - HAEMOLYTIC ANAEMIA [None]
  - THROMBOCYTOPENIA [None]
